FAERS Safety Report 21156468 (Version 1)
Quarter: 2022Q3

REPORT INFORMATION
  Report Type: Spontaneous
  Country: US (occurrence: US)
  Receive Date: 20220801
  Receipt Date: 20220801
  Transmission Date: 20221027
  Serious: No
  Sender: FDA-Public Use
  Company Number: US-PADAGIS-2022PAD00186

PATIENT

DRUGS (1)
  1. PROCTO-MED HC [Suspect]
     Active Substance: HYDROCORTISONE
     Indication: Haemorrhoids
     Dosage: UNK, QID
     Route: 054
     Dates: start: 20220509

REACTIONS (3)
  - Incorrect dose administered [Unknown]
  - Product use complaint [Unknown]
  - Product use in unapproved indication [Unknown]

NARRATIVE: CASE EVENT DATE: 20220501
